FAERS Safety Report 19200860 (Version 1)
Quarter: 2021Q2

REPORT INFORMATION
  Report Type: Spontaneous
  Country: CN (occurrence: CN)
  Receive Date: 20210430
  Receipt Date: 20210430
  Transmission Date: 20210717
  Serious: Yes (Other)
  Sender: FDA-Public Use
  Company Number: CN-PFIZER INC-2021426478

PATIENT
  Age: 29 Year
  Sex: Female
  Weight: 54 kg

DRUGS (5)
  1. TIENAM [Concomitant]
     Active Substance: CILASTATIN SODIUM\IMIPENEM
     Dosage: 0.500 G, 4X/DAY
     Route: 041
     Dates: start: 20210301, end: 20210311
  2. VFEND [Suspect]
     Active Substance: VORICONAZOLE
     Indication: ANTI-INFECTIVE THERAPY
     Dosage: 200.000 MG, 2X/DAY
     Route: 048
     Dates: start: 20210309, end: 20210310
  3. VFEND [Suspect]
     Active Substance: VORICONAZOLE
     Indication: ANTI-INFECTIVE THERAPY
     Dosage: 200.000 MG, 2X/DAY
     Route: 041
     Dates: start: 20210307, end: 20210309
  4. TIENAM [Concomitant]
     Active Substance: CILASTATIN SODIUM\IMIPENEM
     Indication: ANTI-INFECTIVE THERAPY
     Dosage: 0.500 G, 4X/DAY
     Route: 041
     Dates: start: 20210226, end: 20210228
  5. TIENAM [Concomitant]
     Active Substance: CILASTATIN SODIUM\IMIPENEM
     Dosage: 1.000 G, 2X/DAY
     Route: 041
     Dates: start: 20210228, end: 20210301

REACTIONS (4)
  - Apathy [Recovered/Resolved]
  - Altered state of consciousness [Recovered/Resolved]
  - Communication disorder [Recovered/Resolved]
  - Mental disorder [Recovered/Resolved]

NARRATIVE: CASE EVENT DATE: 20210310
